FAERS Safety Report 9198372 (Version 1)
Quarter: 2013Q1

REPORT INFORMATION
  Report Type: Spontaneous
  Country: US (occurrence: None)
  Receive Date: 20130326
  Receipt Date: 20130326
  Transmission Date: 20140127
  Serious: Yes (Death)
  Sender: FDA-Public Use
  Company Number: ADR-2013UNK050

PATIENT
  Age: 119 Day
  Sex: 0

DRUGS (3)
  1. EFAVIRENZ TABS/ (UNK MFR) [Suspect]
     Indication: ACQUIRED IMMUNODEFICIENCY SYNDROME
     Route: 048
     Dates: start: 20100312, end: 20120827
  2. TRUVADA, TVD [Concomitant]
  3. KALETRA, ALUVIA, LPV/R [Concomitant]

REACTIONS (4)
  - Abortion spontaneous [None]
  - Pregnancy [None]
  - Exposure during pregnancy [None]
  - Malaria [None]
